FAERS Safety Report 17745060 (Version 1)
Quarter: 2020Q2

REPORT INFORMATION
  Report Type: Spontaneous
  Country: US (occurrence: US)
  Receive Date: 20200505
  Receipt Date: 20200505
  Transmission Date: 20200714
  Serious: No
  Sender: FDA-Public Use
  Company Number: None

PATIENT
  Age: 71 Year
  Sex: Male
  Weight: 78.75 kg

DRUGS (13)
  1. PREVACID 24 HR [Concomitant]
     Active Substance: LANSOPRAZOLE
  2. VITAMIN D3 10000IU [Concomitant]
  3. ULTRAM [Concomitant]
     Active Substance: TRAMADOL HYDROCHLORIDE
  4. LISINOPRIL\HYDROCHLOROTHIAZIDE [Concomitant]
  5. TAMSULOSIN [Concomitant]
     Active Substance: TAMSULOSIN
  6. LIDOCAINE. [Concomitant]
     Active Substance: LIDOCAINE
  7. TYLENOL [Concomitant]
     Active Substance: ACETAMINOPHEN
  8. NIFEDIPINE 30MG ER (XL/OSM) TABLETS [Suspect]
     Active Substance: NIFEDIPINE
     Indication: CARDIAC DISORDER
     Dosage: ?          QUANTITY:1 TABLET(S);?
     Route: 048
  9. LUNESTA(ESZOPICLONE) [Concomitant]
  10. ATENOLOL. [Concomitant]
     Active Substance: ATENOLOL
  11. KETOCONAZOLE 2% SHAMPOO [Concomitant]
     Active Substance: KETOCONAZOLE
  12. TUMS PRN [Concomitant]
  13. CENTRUM B COMPLEX [Concomitant]

REACTIONS (3)
  - Condition aggravated [None]
  - Insomnia [None]
  - Flushing [None]

NARRATIVE: CASE EVENT DATE: 20200501
